FAERS Safety Report 11458128 (Version 1)
Quarter: 2015Q3

REPORT INFORMATION
  Report Type: Spontaneous
  Country: US (occurrence: None)
  Receive Date: 20150903
  Receipt Date: 20150903
  Transmission Date: 20151125
  Serious: No
  Sender: FDA-Public Use
  Company Number: None

PATIENT
  Sex: Female

DRUGS (1)
  1. PACLITAXEL NATURAL SOURCE 300MG [Suspect]
     Active Substance: PACLITAXEL
     Dosage: DATES OF USE: WINTER/SPRING 2015

REACTIONS (4)
  - Petechiae [None]
  - Rash [None]
  - Pruritus [None]
  - Product substitution issue [None]
